FAERS Safety Report 9104691 (Version 1)
Quarter: 2013Q1

REPORT INFORMATION
  Report Type: Spontaneous
  Country: PR (occurrence: PR)
  Receive Date: 20130220
  Receipt Date: 20130220
  Transmission Date: 20140127
  Serious: Yes (Other)
  Sender: FDA-Public Use
  Company Number: PR-BAYER-2013-019242

PATIENT
  Sex: Female

DRUGS (1)
  1. STIVARGA [Suspect]
     Dosage: 160 MG
     Dates: start: 2013, end: 201302

REACTIONS (2)
  - Palmar-plantar erythrodysaesthesia syndrome [None]
  - Rash [None]
